FAERS Safety Report 12463582 (Version 1)
Quarter: 2016Q2

REPORT INFORMATION
  Report Type: Spontaneous
  Country: US (occurrence: None)
  Receive Date: 20160613
  Receipt Date: 20160613
  Transmission Date: 20160815
  Serious: No
  Sender: FDA-Public Use
  Company Number: None

PATIENT
  Age: 30 Year
  Sex: Male

DRUGS (1)
  1. HALOPERIDOL. [Suspect]
     Active Substance: HALOPERIDOL
     Indication: AGITATION
     Route: 030
     Dates: start: 20150315, end: 20150315

REACTIONS (4)
  - Hypersensitivity [None]
  - Dystonia [None]
  - Muscle contractions involuntary [None]
  - Muscle spasms [None]

NARRATIVE: CASE EVENT DATE: 20150316
